FAERS Safety Report 14353255 (Version 1)
Quarter: 2018Q1

REPORT INFORMATION
  Report Type: Spontaneous
  Country: US (occurrence: US)
  Receive Date: 20180105
  Receipt Date: 20180105
  Transmission Date: 20180509
  Serious: Yes (Hospitalization)
  Sender: FDA-Public Use
  Company Number: US-USPHARMA LIMITED-2017-US-000007

PATIENT
  Age: 68 Year
  Sex: Male

DRUGS (6)
  1. ROSUVASTATIN. [Concomitant]
     Active Substance: ROSUVASTATIN
     Indication: PRODUCT USED FOR UNKNOWN INDICATION
     Route: 065
  2. METOPROLOL. [Concomitant]
     Active Substance: METOPROLOL
     Indication: PRODUCT USED FOR UNKNOWN INDICATION
     Route: 065
  3. NITRO-DUR [Suspect]
     Active Substance: NITROGLYCERIN
     Indication: HYPERTENSION
     Dosage: 40 MG DAILY
     Route: 062
     Dates: start: 20171217
  4. VALSARTAN. [Concomitant]
     Active Substance: VALSARTAN
     Indication: PRODUCT USED FOR UNKNOWN INDICATION
     Route: 065
  5. FUROSEMIDE. [Concomitant]
     Active Substance: FUROSEMIDE
     Indication: PRODUCT USED FOR UNKNOWN INDICATION
     Route: 065
  6. CLOPIDOGREL [Concomitant]
     Active Substance: CLOPIDOGREL BISULFATE
     Route: 065

REACTIONS (5)
  - Pulmonary oedema [Unknown]
  - Dyspnoea [Recovered/Resolved]
  - Drug ineffective for unapproved indication [Recovered/Resolved]
  - Inappropriate schedule of drug administration [Recovered/Resolved]
  - Anxiety [Recovering/Resolving]

NARRATIVE: CASE EVENT DATE: 20171217
